FAERS Safety Report 6179731-1 (Version None)
Quarter: 2009Q2

REPORT INFORMATION
  Report Type: 
  Country: None (occurrence: None)
  Receive Date: 20090505
  Receipt Date: 20090423
  Transmission Date: 20091009
  Serious: Yes (Death, Hospitalization)
  Sender: FDA-Public Use
  Company Number: TW-SANOFI-SYNTHELABO-A01200813251

PATIENT
  Age: 58 Year
  Sex: Female

DRUGS (8)
  1. ALLOPURINOL [Suspect]
     Indication: GOUTY ARTHRITIS
     Route: 065
  2. LOSEC [Concomitant]
     Indication: GASTRIC ULCER
     Dosage: UNK
     Route: 065
  3. TAPAZOLE [Concomitant]
     Indication: HYPERTHYROIDISM
     Dosage: UNK
     Route: 065
  4. COLCHICINE [Concomitant]
     Indication: GOUTY ARTHRITIS
     Dosage: UNK
     Route: 065
     Dates: start: 20070308, end: 20070319
  5. BENZBROMARONE [Concomitant]
     Indication: GOUTY ARTHRITIS
     Route: 065
     Dates: start: 20070308, end: 20070319
  6. LANSOPRAZOLE [Suspect]
     Indication: UPPER GASTROINTESTINAL HAEMORRHAGE
     Route: 048
     Dates: start: 20070306, end: 20070322
  7. CELEBREX [Suspect]
     Indication: GOUTY ARTHRITIS
     Route: 048
     Dates: start: 20070308, end: 20070319
  8. PLAVIX [Suspect]
     Indication: ISCHAEMIC STROKE
     Route: 048
     Dates: start: 20070306, end: 20070320

REACTIONS (1)
  - STEVENS-JOHNSON SYNDROME [None]
